FAERS Safety Report 16848575 (Version 2)
Quarter: 2019Q3

REPORT INFORMATION
  Report Type: Report from Study
  Country: JP (occurrence: JP)
  Receive Date: 20190925
  Receipt Date: 20190926
  Transmission Date: 20191005
  Serious: Yes (Hospitalization, Other)
  Sender: FDA-Public Use
  Company Number: JP-B.I. PHARMACEUTICALS,INC./RIDGEFIELD-2019-BI-103597

PATIENT
  Age: 40 Year
  Sex: Male
  Weight: 89 kg

DRUGS (1)
  1. PRAZAXA [Suspect]
     Active Substance: DABIGATRAN ETEXILATE MESYLATE
     Indication: ATRIAL FIBRILLATION
     Dosage: PRADAXA ADMINISTRATION 17 MONTHS
     Route: 065

REACTIONS (1)
  - Cerebral infarction [Unknown]
